FAERS Safety Report 15530578 (Version 4)
Quarter: 2019Q2

REPORT INFORMATION
  Report Type: Spontaneous
  Country: CA (occurrence: CA)
  Receive Date: 20181018
  Receipt Date: 20190522
  Transmission Date: 20190711
  Serious: Yes (Other)
  Sender: FDA-Public Use
  Company Number: CA-PFIZER INC-2018240913

PATIENT
  Age: 9 Year
  Sex: Male

DRUGS (4)
  1. XYNTHA [Suspect]
     Active Substance: ANTIHEMOPHILIC FACTOR, HUMAN RECOMBINANT RESIDUES 743-1636 DELETED
     Indication: FACTOR VIII DEFICIENCY
     Dosage: 500 IU, UNK
     Route: 042
  2. XYNTHA [Suspect]
     Active Substance: ANTIHEMOPHILIC FACTOR, HUMAN RECOMBINANT RESIDUES 743-1636 DELETED
     Dosage: 1000 IU, UNK
     Route: 042
     Dates: start: 20181023
  3. XYNTHA [Suspect]
     Active Substance: ANTIHEMOPHILIC FACTOR, HUMAN RECOMBINANT RESIDUES 743-1636 DELETED
     Dosage: 500 IU, UNK
     Route: 042
  4. XYNTHA [Suspect]
     Active Substance: ANTIHEMOPHILIC FACTOR, HUMAN RECOMBINANT RESIDUES 743-1636 DELETED
     Dosage: 1000 IU, UNK
     Route: 042
     Dates: start: 20181024

REACTIONS (10)
  - Joint injury [Unknown]
  - Fall [Unknown]
  - Infusion site oedema [Unknown]
  - Poor venous access [Recovered/Resolved]
  - Contusion [Recovering/Resolving]
  - Pain in extremity [Recovered/Resolved]
  - Haemorrhage [Unknown]
  - Skin abrasion [Unknown]
  - Blood urine present [Unknown]
  - Dehydration [Unknown]

NARRATIVE: CASE EVENT DATE: 20180605
